FAERS Safety Report 9779948 (Version 1)
Quarter: 2013Q4

REPORT INFORMATION
  Report Type: Spontaneous
  Country: CL (occurrence: CL)
  Receive Date: 20131223
  Receipt Date: 20131223
  Transmission Date: 20140711
  Serious: Yes (Other)
  Sender: FDA-Public Use
  Company Number: CL-PFIZER INC-2013366016

PATIENT
  Age: 75 Year
  Sex: Male

DRUGS (5)
  1. LYRICA [Suspect]
     Indication: POLYNEUROPATHY
     Dosage: 1 DF, 2X/DAY
     Route: 048
     Dates: start: 2005
  2. LORAZEPAM [Concomitant]
  3. TRITTICO [Concomitant]
  4. ECOTRIN [Concomitant]
  5. GLAFORNIL [Concomitant]
     Dosage: 750 MG, UNK

REACTIONS (3)
  - Maculopathy [Not Recovered/Not Resolved]
  - Irritability [Not Recovered/Not Resolved]
  - Skin exfoliation [Not Recovered/Not Resolved]
